FAERS Safety Report 6662625-2 (Version None)
Quarter: 2010Q1

REPORT INFORMATION
  Report Type: 
  Country: None (occurrence: None)
  Receive Date: 20100329
  Receipt Date: 20100316
  Transmission Date: 20100710
  Serious: Yes (Death, Hospitalization, Congenital Anomaly, Other)
  Sender: FDA-Public Use
  Company Number: LEO-2010-00216

PATIENT
  Sex: Male
  Weight: 2.95 kg

DRUGS (9)
  1. INNOHEP [Suspect]
     Indication: DRUG EXPOSURE DURING PREGNANCY
     Dosage: 3500 IU (3500 IU, 1 IN 1 D), TRANSPLACENTAL; 3500 IU (3500 IU, 1 IN 1 D), TRANSMAMMARY
     Route: 064
     Dates: start: 20060820, end: 20070326
  2. INNOHEP [Suspect]
     Indication: DRUG EXPOSURE DURING PREGNANCY
     Dosage: 3500 IU (3500 IU, 1 IN 1 D), TRANSPLACENTAL; 3500 IU (3500 IU, 1 IN 1 D), TRANSMAMMARY
     Route: 064
     Dates: start: 20070330, end: 20070404
  3. ASPIRIN [Concomitant]
  4. CEPHRADINE [Concomitant]
  5. PARACETAMOL [Concomitant]
  6. MEPERIDINE HCL [Concomitant]
  7. PHENERGAN (PROMETHAZINE) [Concomitant]
  8. VELOSEF (CEFRAZINE) [Concomitant]
  9. DEXAMETHASONE [Concomitant]

REACTIONS (5)
  - CONGENITAL MITOCHONDRIAL CYTOPATHY [None]
  - MATERNAL DRUGS AFFECTING FOETUS [None]
  - NEONATAL RESPIRATORY DISTRESS SYNDROME [None]
  - PREMATURE BABY [None]
  - SUDDEN DEATH [None]
